FAERS Safety Report 9320424 (Version 1)
Quarter: 2013Q2

REPORT INFORMATION
  Report Type: Spontaneous
  Country: US (occurrence: US)
  Receive Date: 20130530
  Receipt Date: 20130530
  Transmission Date: 20140414
  Serious: Yes (Hospitalization)
  Sender: FDA-Public Use
  Company Number: US-B.I. PHARMACEUTICALS,INC./RIDGEFIELD-2013-BI-14457BP

PATIENT
  Age: 54 Year
  Sex: Female
  Weight: 136 kg

DRUGS (8)
  1. SPIRIVA [Suspect]
     Indication: CHRONIC OBSTRUCTIVE PULMONARY DISEASE
     Dosage: 18 MCG
     Route: 055
     Dates: start: 200701, end: 200711
  2. SPIRIVA [Suspect]
     Dosage: 18 MCG
     Route: 055
     Dates: start: 200906, end: 200906
  3. SPIRIVA [Suspect]
     Dosage: 18 MCG
     Route: 055
     Dates: start: 201103, end: 201107
  4. SPIRIVA [Suspect]
     Dosage: 18 MCG
     Route: 055
     Dates: start: 201208, end: 201209
  5. SPIRIVA [Suspect]
     Dates: start: 20130514
  6. FISH OIL [Concomitant]
     Indication: VITAMIN SUPPLEMENTATION
     Dosage: 3600 MG
     Route: 048
     Dates: start: 200805
  7. LANTUS INSULIN [Concomitant]
     Indication: DIABETES MELLITUS
     Dosage: 80 U
     Route: 058
     Dates: start: 2005
  8. HUMALOG [Concomitant]
     Indication: DIABETES MELLITUS
     Dosage: 60 U
     Route: 058
     Dates: start: 201111

REACTIONS (7)
  - Oedema peripheral [Recovered/Resolved]
  - Pneumonia [Recovered/Resolved]
  - Blood glucose abnormal [Recovered/Resolved]
  - Memory impairment [Recovered/Resolved]
  - Memory impairment [Recovered/Resolved]
  - Memory impairment [Recovered/Resolved]
  - Memory impairment [Recovered/Resolved]
